FAERS Safety Report 20058887 (Version 1)
Quarter: 2021Q4

REPORT INFORMATION
  Report Type: Spontaneous
  Country: US (occurrence: None)
  Receive Date: 20211111
  Receipt Date: 20211111
  Transmission Date: 20220303
  Serious: Yes (Other)
  Sender: FDA-Public Use
  Company Number: None

PATIENT
  Age: 52 Year
  Sex: Female

DRUGS (2)
  1. MONTELUKAST [Suspect]
     Active Substance: MONTELUKAST SODIUM
     Indication: Asthma
     Dosage: FREQUENCY : AT BEDTIME;?
     Route: 048
     Dates: start: 20101010, end: 20201031
  2. ALBUTEROL [Concomitant]
     Active Substance: ALBUTEROL

REACTIONS (12)
  - Sleep disorder [None]
  - Depression [None]
  - Mood swings [None]
  - Fatigue [None]
  - Feeling abnormal [None]
  - Confusional state [None]
  - Anxiety [None]
  - Electric shock sensation [None]
  - Product dose omission issue [None]
  - Headache [None]
  - Dizziness [None]
  - Suicidal ideation [None]
